FAERS Safety Report 9818422 (Version 3)
Quarter: 2014Q1

REPORT INFORMATION
  Report Type: Report from Study
  Country: DE (occurrence: DE)
  Receive Date: 20140115
  Receipt Date: 20140120
  Transmission Date: 20141002
  Serious: Yes (Hospitalization)
  Sender: FDA-Public Use
  Company Number: DE-JNJFOC-20130807650

PATIENT
  Age: 31 Year
  Sex: Male
  Weight: 77 kg

DRUGS (12)
  1. AZATHIOPRIN [Concomitant]
     Indication: CROHN^S DISEASE
     Route: 065
     Dates: start: 20130809
  2. CLINDAMYCIN [Concomitant]
     Route: 065
     Dates: start: 20130724, end: 20130828
  3. COTRIM [Concomitant]
     Route: 065
     Dates: start: 20130724, end: 20130828
  4. CALCIMAGON [Concomitant]
     Route: 065
  5. PANTOZOL [Concomitant]
     Indication: DYSPEPSIA
     Route: 065
  6. FOLSAN [Concomitant]
     Indication: FOLATE DEFICIENCY
     Route: 065
  7. REMICADE [Suspect]
     Indication: CROHN^S DISEASE
     Route: 042
     Dates: start: 20131223
  8. REMICADE [Suspect]
     Indication: CROHN^S DISEASE
     Route: 042
     Dates: start: 20130902
  9. REMICADE [Suspect]
     Indication: CROHN^S DISEASE
     Route: 042
     Dates: start: 20130419
  10. REMICADE [Suspect]
     Indication: CROHN^S DISEASE
     Route: 042
     Dates: start: 20130530
  11. JONOSTERIL S [Concomitant]
     Route: 065
  12. PREDNISOLON [Concomitant]
     Indication: CROHN^S DISEASE
     Route: 065
     Dates: start: 20130828

REACTIONS (5)
  - Crohn^s disease [Unknown]
  - Drug ineffective [Unknown]
  - Anal fistula [Not Recovered/Not Resolved]
  - Cerebral toxoplasmosis [Unknown]
  - Hypoaesthesia [Not Recovered/Not Resolved]
